FAERS Safety Report 11556410 (Version 1)
Quarter: 2015Q3

REPORT INFORMATION
  Report Type: Spontaneous
  Country: ZA (occurrence: ZA)
  Receive Date: 20150925
  Receipt Date: 20150925
  Transmission Date: 20151125
  Serious: Yes (Other)
  Sender: FDA-Public Use
  Company Number: ZA-PFIZER INC-2015318266

PATIENT
  Age: 35 Year
  Sex: Female

DRUGS (2)
  1. ZITHROMAX [Suspect]
     Active Substance: AZITHROMYCIN DIHYDRATE
     Indication: INFLUENZA
     Dosage: 2 G, SINGLE
     Route: 048
     Dates: start: 2010
  2. NEXIAM [Concomitant]
     Active Substance: ESOMEPRAZOLE
     Indication: HIATUS HERNIA
     Dosage: 40 MG, DAILY
     Route: 048

REACTIONS (7)
  - Umbilical hernia [Unknown]
  - Vomiting [Recovered/Resolved]
  - Malaise [Unknown]
  - Medication error [Unknown]
  - Hiatus hernia [Not Recovered/Not Resolved]
  - Cardiac arrest [Recovered/Resolved]
  - Diarrhoea [Recovered/Resolved]
